FAERS Safety Report 8262473-6 (Version None)
Quarter: 2012Q1

REPORT INFORMATION
  Report Type: 
  Country: None (occurrence: None)
  Receive Date: 20120321
  Receipt Date: 20110930
  Transmission Date: 20120608
  Serious: Yes (Other)
  Sender: FDA-Public Use
  Company Number: 2011SP046443

PATIENT
  Age: 10 Year
  Sex: Female

DRUGS (3)
  1. RIBAVIRIN [Suspect]
     Indication: PRODUCT USED FOR UNKNOWN INDICATION
  2. PEG-INTRON [Suspect]
     Indication: HEPATITIS C
     Dosage: 50 MCG;QW;SC
     Dates: start: 20110830, end: 20110930
  3. TYLENOL (CAPLET) [Concomitant]

REACTIONS (8)
  - EXCESSIVE EYE BLINKING [None]
  - STREPTOCOCCAL INFECTION [None]
  - EYE MOVEMENT DISORDER [None]
  - HEAD LAG [None]
  - EYE PAIN [None]
  - RASH [None]
  - EAR INFECTION [None]
  - GASTROENTERITIS VIRAL [None]
